FAERS Safety Report 7710830-6 (Version None)
Quarter: 2011Q3

REPORT INFORMATION
  Report Type: 
  Country: None (occurrence: None)
  Receive Date: 20110825
  Receipt Date: 20110825
  Transmission Date: 20111222
  Serious: Yes (Hospitalization)
  Sender: FDA-Public Use
  Company Number: IE-ABBOTT-11P-167-0706217-00

PATIENT
  Age: 56 Year
  Sex: Female

DRUGS (3)
  1. HUMIRA [Suspect]
     Indication: CROHN'S DISEASE
     Dates: start: 20100901, end: 20100901
  2. HUMIRA [Suspect]
     Dates: start: 20100901, end: 20100901
  3. MERCAPTOPURINE [Concomitant]
     Indication: PRODUCT USED FOR UNKNOWN INDICATION

REACTIONS (4)
  - ENTEROCOCCAL INFECTION [None]
  - PNEUMONIA KLEBSIELLA [None]
  - ESCHERICHIA URINARY TRACT INFECTION [None]
  - HISTIOCYTOSIS HAEMATOPHAGIC [None]
